FAERS Safety Report 4315380-5 (Version None)
Quarter: 2004Q1

REPORT INFORMATION
  Report Type: 
  Country: None (occurrence: None)
  Receive Date: 20040309
  Receipt Date: 20040218
  Transmission Date: 20041129
  Serious: Yes (Hospitalization)
  Sender: FDA-Public Use
  Company Number: JP_040202669

PATIENT
  Age: 69 Year
  Sex: Female

DRUGS (6)
  1. ZYPREXA [Suspect]
     Indication: SCHIZOPHRENIA, PARANOID TYPE
     Dosage: 5 MG/1 DAY
     Route: 048
     Dates: start: 20020715, end: 20020719
  2. RISPERDAL [Concomitant]
  3. TAMSOLIN (BIPERIDEN) [Concomitant]
  4. MEVALOTIN (PRAVASTATIN SODIUIM) [Concomitant]
  5. LENDORM [Concomitant]
  6. LAXOBERON           (SODIUM PICOSULFATE) [Concomitant]

REACTIONS (9)
  - ARTHRALGIA [None]
  - ASTHENIA [None]
  - DECREASED ACTIVITY [None]
  - DYSPHAGIA [None]
  - GAMMA-GLUTAMYLTRANSFERASE INCREASED [None]
  - HEPATIC FUNCTION ABNORMAL [None]
  - HYPOAESTHESIA [None]
  - PARKINSON'S DISEASE [None]
  - UPPER RESPIRATORY TRACT INFLAMMATION [None]
